FAERS Safety Report 6405535-8 (Version None)
Quarter: 2009Q4

REPORT INFORMATION
  Report Type: 
  Country: None (occurrence: None)
  Receive Date: 20091019
  Receipt Date: 20091009
  Transmission Date: 20100525
  Serious: Yes (Death, Other)
  Sender: FDA-Public Use
  Company Number: FR-PFIZER INC-2009284419

PATIENT
  Age: 45 Year

DRUGS (17)
  1. ATARAX [Suspect]
     Dosage: UNK
     Route: 048
     Dates: end: 20090316
  2. CETIRIZINE HCL [Suspect]
     Dosage: UNK
     Route: 048
     Dates: end: 20090316
  3. RIVOTRIL [Concomitant]
     Dosage: UNK
     Dates: end: 20090316
  4. ESCITALOPRAM OXALATE [Concomitant]
     Dosage: UNK
     Dates: end: 20090316
  5. CODEINE [Concomitant]
  6. DIHYDROCODEINE [Concomitant]
     Dosage: UNK
     Dates: end: 20090316
  7. METHOCARBAMOL [Concomitant]
  8. ARESTAL [Concomitant]
  9. LEXOMIL [Concomitant]
  10. VOGALENE [Concomitant]
  11. EUROBIOL [Concomitant]
  12. INIPOMP [Concomitant]
  13. SERESTA [Concomitant]
  14. SPASFON [Concomitant]
  15. VITABACT [Concomitant]
  16. CIALIS [Concomitant]
  17. HELICIDINE [Concomitant]

REACTIONS (2)
  - DRUG TOXICITY [None]
  - RESPIRATORY DEPRESSION [None]
